FAERS Safety Report 22005646 (Version 1)
Quarter: 2023Q1

REPORT INFORMATION
  Report Type: Spontaneous
  Country: US (occurrence: US)
  Receive Date: 20230217
  Receipt Date: 20230217
  Transmission Date: 20230418
  Serious: Yes (Other)
  Sender: FDA-Public Use
  Company Number: US-PFIZER INC-202300067096

PATIENT
  Age: 57 Year
  Sex: Female
  Weight: 75.7 kg

DRUGS (1)
  1. HYDROCORTISONE [Suspect]
     Active Substance: HYDROCORTISONE
     Indication: Adrenal suppression
     Dosage: UNK

REACTIONS (2)
  - Hypothyroidism [Unknown]
  - Headache [Unknown]

NARRATIVE: CASE EVENT DATE: 20200101
